FAERS Safety Report 5682725-3 (Version None)
Quarter: 2008Q1

REPORT INFORMATION
  Report Type: 
  Country: None (occurrence: None)
  Receive Date: 20080326
  Receipt Date: 20080326
  Transmission Date: 20080703
  Serious: Yes (Hospitalization)
  Sender: FDA-Public Use
  Company Number: None

PATIENT
  Age: 57 Year
  Sex: Male

DRUGS (2)
  1. TPN INGREDIENTS ON TEXT AMINOSYN [Suspect]
     Indication: PARENTERAL NUTRITION
     Dates: start: 20080301, end: 20080325
  2. TPN INGREDIENTS ON TEXT AMINOSYN [Suspect]
     Indication: PARENTERAL NUTRITION
     Dates: start: 20080301, end: 20080325

REACTIONS (5)
  - DYSPNOEA [None]
  - FLUSHING [None]
  - INFUSION RELATED REACTION [None]
  - PHARMACEUTICAL PRODUCT COMPLAINT [None]
  - PYREXIA [None]
